FAERS Safety Report 9514299 (Version 4)
Quarter: 2013Q4

REPORT INFORMATION
  Report Type: Report from Study
  Country: US (occurrence: US)
  Receive Date: 20130911
  Receipt Date: 20131017
  Transmission Date: 20140711
  Serious: Yes (Death, Life-Threatening, Other)
  Sender: FDA-Public Use
  Company Number: US-PFIZER INC-2013258772

PATIENT
  Age: 66 Year
  Sex: Male
  Weight: 107.5 kg

DRUGS (19)
  1. SOMAVERT [Suspect]
     Indication: ACROMEGALY
     Dosage: 25 MG, 1X/DAY, 7 INJECTION PER WEEKS
     Route: 058
     Dates: start: 200503
  2. TRAZODONE [Concomitant]
     Dosage: UNK
     Route: 048
     Dates: start: 20120621
  3. LEVOTHYROXINE [Concomitant]
     Dosage: UNK
     Route: 048
     Dates: start: 20120620
  4. ZANTAC [Concomitant]
     Dosage: UNK
     Route: 048
     Dates: start: 20111214
  5. PRAVASTATIN [Concomitant]
     Indication: LIPIDS ABNORMAL
     Dosage: UNK
     Route: 048
     Dates: start: 20111214
  6. AMLODIPINE BESILATE [Concomitant]
     Indication: HYPERTENSION
     Dosage: UNK
     Route: 048
     Dates: start: 20111214, end: 20130823
  7. ERGOCALCIFEROL [Concomitant]
     Dosage: UNK
     Route: 048
     Dates: start: 20100602
  8. TESTOSTERONE CIPIONATE [Concomitant]
     Dosage: UNK
     Route: 030
     Dates: start: 20091208
  9. PRISTIQ [Concomitant]
     Dosage: UNK
     Route: 048
     Dates: start: 20090630
  10. WARFARIN [Concomitant]
     Dosage: UNK
     Dates: start: 20070807
  11. SIMVASTATIN [Concomitant]
     Indication: LIPIDS ABNORMAL
     Dosage: UNK
     Dates: start: 20061107
  12. RAMIPRIL [Concomitant]
     Indication: HYPERTENSION
     Dosage: UNK
     Dates: start: 20061107
  13. RAMIPRIL [Concomitant]
     Dosage: UNK
     Dates: start: 20081209, end: 20130823
  14. PAROXETINE [Concomitant]
     Dosage: UNK
     Dates: start: 20080604
  15. COUMADIN [Concomitant]
     Dosage: UNK
     Dates: start: 20061107
  16. OCTREOTIDE [Concomitant]
     Dosage: UNK
     Dates: start: 1995
  17. OCTREOTIDE [Concomitant]
     Dosage: UNK
     Dates: end: 200502
  18. VICODIN [Concomitant]
     Dosage: UNK
     Route: 048
     Dates: start: 20130822, end: 20130822
  19. 0.9 NORMAL SALINE [Concomitant]
     Dosage: UNK
     Route: 042
     Dates: start: 20130822, end: 20130822

REACTIONS (1)
  - Death [Fatal]
